FAERS Safety Report 4585811-4 (Version None)
Quarter: 2005Q1

REPORT INFORMATION
  Report Type: 
  Country: None (occurrence: None)
  Receive Date: 20050216
  Receipt Date: 20050202
  Transmission Date: 20050727
  Serious: Yes (Death)
  Sender: FDA-Public Use
  Company Number: 2005-DE-00408GD

PATIENT
  Sex: 0

DRUGS (2)
  1. COCAINE (COCAINE) [Suspect]
  2. TRICYCLIC ANTIDEPRESSANTS (TICYCLIC ANTIDEPRESSANTS) [Suspect]

REACTIONS (1)
  - DEATH [None]
